FAERS Safety Report 10886181 (Version 1)
Quarter: 2015Q1

REPORT INFORMATION
  Report Type: Spontaneous
  Country: JP (occurrence: JP)
  Receive Date: 20150304
  Receipt Date: 20150304
  Transmission Date: 20150721
  Serious: Yes (Hospitalization)
  Sender: FDA-Public Use
  Company Number: JP-ABBVIE-15K-087-1353143-00

PATIENT
  Age: 24 Year
  Sex: Female
  Weight: 40 kg

DRUGS (4)
  1. MESALAZINE [Concomitant]
     Active Substance: MESALAMINE
     Indication: CROHN^S DISEASE
     Route: 048
     Dates: start: 20150206
  2. BIFIDOBACTERIUM NOS [Concomitant]
     Indication: CROHN^S DISEASE
     Route: 048
     Dates: start: 20150206
  3. ELENTAL [Concomitant]
     Indication: CROHN^S DISEASE
     Route: 048
     Dates: start: 20150206
  4. HUMIRA [Suspect]
     Active Substance: ADALIMUMAB
     Indication: CROHN^S DISEASE
     Route: 058
     Dates: start: 20150219, end: 20150219

REACTIONS (3)
  - Systemic lupus erythematosus [Not Recovered/Not Resolved]
  - Erythema [Not Recovered/Not Resolved]
  - Pyrexia [Not Recovered/Not Resolved]

NARRATIVE: CASE EVENT DATE: 20150221
